FAERS Safety Report 22005230 (Version 1)
Quarter: 2023Q1

REPORT INFORMATION
  Report Type: Spontaneous
  Country: BE (occurrence: BE)
  Receive Date: 20230217
  Receipt Date: 20230217
  Transmission Date: 20230418
  Serious: Yes (Hospitalization, Other)
  Sender: FDA-Public Use
  Company Number: BE-009507513-2301BEL009248

PATIENT
  Age: 31 Year
  Sex: Female
  Weight: 59 kg

DRUGS (4)
  1. KEYTRUDA [Suspect]
     Active Substance: PEMBROLIZUMAB
     Indication: Triple negative breast cancer
     Dosage: 200 MILLIGRAM, Q3W
     Dates: start: 20220830, end: 20221206
  2. KEYTRUDA [Suspect]
     Active Substance: PEMBROLIZUMAB
     Indication: Chemotherapy
  3. CARBOPLATIN\PACLITAXEL [Concomitant]
     Active Substance: CARBOPLATIN\PACLITAXEL
     Indication: Chemotherapy
     Dosage: Q1 WEEK
     Route: 042
     Dates: start: 20220830, end: 20221206
  4. LEVOTHYROXINE SODIUM [Concomitant]
     Active Substance: LEVOTHYROXINE SODIUM
     Dosage: 25 UG/DAY,1X/DAY

REACTIONS (2)
  - Immune-mediated pericarditis [Recovered/Resolved with Sequelae]
  - Urosepsis [Unknown]

NARRATIVE: CASE EVENT DATE: 20221208
